FAERS Safety Report 14851031 (Version 3)
Quarter: 2018Q2

REPORT INFORMATION
  Report Type: Spontaneous
  Country: DE (occurrence: DE)
  Receive Date: 20180506
  Receipt Date: 20180615
  Transmission Date: 20180711
  Serious: Yes (Other)
  Sender: FDA-Public Use
  Company Number: DE-ROCHE-2113759

PATIENT
  Age: 51 Year
  Sex: Male
  Weight: 80 kg

DRUGS (4)
  1. ZELBORAF [Suspect]
     Active Substance: VEMURAFENIB
     Indication: METASTATIC MALIGNANT MELANOMA
     Route: 048
     Dates: start: 20180419, end: 20180420
  2. COTELLIC [Suspect]
     Active Substance: COBIMETINIB
     Indication: METASTATIC MALIGNANT MELANOMA
     Route: 048
     Dates: start: 20180419, end: 20180420
  3. ZELBORAF [Suspect]
     Active Substance: VEMURAFENIB
     Dosage: REINTRODUCED
     Route: 048
  4. ZOPICLON [Concomitant]
     Active Substance: ZOPICLONE
     Indication: INSOMNIA
     Route: 048

REACTIONS (4)
  - Purpura [Recovering/Resolving]
  - Stevens-Johnson syndrome [Unknown]
  - Dermatitis exfoliative generalised [Unknown]
  - Purpura [Not Recovered/Not Resolved]

NARRATIVE: CASE EVENT DATE: 20180421
